FAERS Safety Report 15280650 (Version 1)
Quarter: 2018Q3

REPORT INFORMATION
  Report Type: Spontaneous
  Country: KR (occurrence: KR)
  Receive Date: 20180815
  Receipt Date: 20180815
  Transmission Date: 20181010
  Serious: Yes (Other)
  Sender: FDA-Public Use
  Company Number: KR-BAYER-2018-150175

PATIENT
  Age: 44 Year
  Sex: Female

DRUGS (3)
  1. MIRENA [Suspect]
     Active Substance: LEVONORGESTREL
     Indication: HYDROMETRA
     Dosage: 20 MCG/24HR, CONT
     Route: 015
  2. QLAIRA [Suspect]
     Active Substance: DIENOGEST\ESTRADIOL VALERATE
     Dosage: UNK
     Route: 048
  3. MIRENA [Suspect]
     Active Substance: LEVONORGESTREL
     Indication: HYDROMETRA
     Dosage: 20 MCG/24HR, CONT
     Route: 015

REACTIONS (6)
  - Petechiae [None]
  - Device expulsion [None]
  - Therapeutic product ineffective for unapproved indication [Not Recovered/Not Resolved]
  - Hydrosalpinx [None]
  - Off label use of device [None]
  - Device use issue [None]
